FAERS Safety Report 25525191 (Version 1)
Quarter: 2025Q3

REPORT INFORMATION
  Report Type: Spontaneous
  Country: US (occurrence: US)
  Receive Date: 20250707
  Receipt Date: 20250707
  Transmission Date: 20251021
  Serious: No
  Sender: SANOFI AVENTIS
  Company Number: US-SA-2025SA190302

PATIENT
  Age: 24 Year
  Sex: Male

DRUGS (4)
  1. ALPROLIX [Suspect]
     Active Substance: EFTRENONACOG ALFA
     Indication: Factor IX deficiency
     Dosage: 4000 U, QW
     Route: 042
     Dates: start: 202205
  2. ALPROLIX [Suspect]
     Active Substance: EFTRENONACOG ALFA
     Indication: Factor IX deficiency
     Dosage: 4000 U, QW
     Route: 042
     Dates: start: 202205
  3. ALPROLIX [Suspect]
     Active Substance: EFTRENONACOG ALFA
  4. ALPROLIX [Suspect]
     Active Substance: EFTRENONACOG ALFA

REACTIONS (1)
  - Haemorrhage [Unknown]

NARRATIVE: CASE EVENT DATE: 20250702
